FAERS Safety Report 7797798-1 (Version None)
Quarter: 2011Q4

REPORT INFORMATION
  Report Type: 
  Country: None (occurrence: None)
  Receive Date: 20111005
  Receipt Date: 20110923
  Transmission Date: 20120403
  Serious: Yes (Hospitalization, Other)
  Sender: FDA-Public Use
  Company Number: US-ELI_LILLY_AND_COMPANY-US201105004959

PATIENT
  Sex: Female
  Weight: 62 kg

DRUGS (10)
  1. FORTEO [Suspect]
     Dosage: 20 UG, QD
  2. A + D OINTMENT [Concomitant]
     Indication: DYSPNOEA
  3. FORTEO [Suspect]
     Dosage: 20 UG, QD
  4. FORTEO [Suspect]
     Indication: OSTEOPOROSIS
     Dosage: 20 UG, QD
  5. VITAMIN D [Concomitant]
  6. EVISTA [Suspect]
     Dosage: UNK
     Dates: end: 20101101
  7. FORTEO [Suspect]
     Dosage: 20 UG, QD
  8. CALCIUM CARBONATE [Concomitant]
     Dosage: 1500 MG, UNK
  9. PRADAXA [Concomitant]
  10. METOPROLOL TARTRATE [Concomitant]
     Indication: HEART RATE
     Dosage: 25 MG, UNKNOWN

REACTIONS (32)
  - HEAD DISCOMFORT [None]
  - CHEST DISCOMFORT [None]
  - DISCOMFORT [None]
  - VARICOSE VEIN [None]
  - DYSGEUSIA [None]
  - PAIN IN EXTREMITY [None]
  - INSOMNIA [None]
  - CHEST PAIN [None]
  - INJECTION SITE ERYTHEMA [None]
  - INJECTION SITE HAEMATOMA [None]
  - MUSCLE SPASMS [None]
  - SINUSITIS [None]
  - THIRST [None]
  - ARTHRITIS [None]
  - DYSPEPSIA [None]
  - EYE MOVEMENT DISORDER [None]
  - MUSCULAR WEAKNESS [None]
  - HEADACHE [None]
  - ATRIAL FIBRILLATION [None]
  - CEREBROVASCULAR DISORDER [None]
  - CONSTIPATION [None]
  - NAUSEA [None]
  - BLOOD DISORDER [None]
  - MIDDLE INSOMNIA [None]
  - ASTHENIA [None]
  - ARTHRALGIA [None]
  - COUGH [None]
  - DIPLEGIA [None]
  - VOMITING [None]
  - DIZZINESS [None]
  - HEART RATE INCREASED [None]
  - HYPOTENSION [None]
